FAERS Safety Report 5979544-7 (Version None)
Quarter: 2008Q4

REPORT INFORMATION
  Report Type: 
  Country: None (occurrence: None)
  Receive Date: 20081204
  Receipt Date: 20081125
  Transmission Date: 20090506
  Serious: Yes (Hospitalization)
  Sender: FDA-Public Use
  Company Number: JP-B.I. PHARMACEUTICALS,INC./RIDGEFIELD-2008-BP-17826NB

PATIENT
  Age: 65 Year
  Sex: Male

DRUGS (2)
  1. BI-SIFROL TABLETS [Suspect]
     Indication: RESTLESS LEGS SYNDROME
     Dosage: .25MG
     Route: 048
  2. CLONAZEPAM [Concomitant]
     Indication: RESTLESS LEGS SYNDROME
     Dosage: .5MG
     Route: 048

REACTIONS (3)
  - DYSAESTHESIA [None]
  - IMPULSE-CONTROL DISORDER [None]
  - SLEEP APNOEA SYNDROME [None]
